FAERS Safety Report 9007880 (Version 2)
Quarter: 2013Q2

REPORT INFORMATION
  Report Type: Spontaneous
  Country: US (occurrence: US)
  Receive Date: 20130111
  Receipt Date: 20130508
  Transmission Date: 20140414
  Serious: Yes (Other)
  Sender: FDA-Public Use
  Company Number: US-BAYER-2013-003389

PATIENT
  Age: 46 Year
  Sex: Female

DRUGS (5)
  1. YASMIN [Suspect]
     Indication: ACNE
     Dosage: UNK
     Dates: start: 2002
  2. YASMIN [Suspect]
     Indication: CONTRACEPTION
  3. ACIPHEX [Concomitant]
  4. CYMBALTA [Concomitant]
  5. VICODIN [Concomitant]

REACTIONS (5)
  - Thrombophlebitis superficial [None]
  - Thrombophlebitis superficial [None]
  - Injury [None]
  - Pain [None]
  - Pain [None]
